FAERS Safety Report 17186612 (Version 1)
Quarter: 2019Q4

REPORT INFORMATION
  Report Type: Spontaneous
  Country: NL (occurrence: DE)
  Receive Date: 20191220
  Receipt Date: 20191220
  Transmission Date: 20200122
  Serious: Yes (Death, Other)
  Sender: FDA-Public Use
  Company Number: DE-FRESENIUS KABI-FK201914081

PATIENT
  Age: 51 Year
  Sex: Male
  Weight: 83 kg

DRUGS (17)
  1. IRINOTECAN (MANUFACTURER UNKNOWN) [Suspect]
     Active Substance: IRINOTECAN
     Indication: OFF LABEL USE
     Dosage: 290-300 MG, UNK
     Route: 065
     Dates: start: 20170125
  2. PANITUMUMAB [Suspect]
     Active Substance: PANITUMUMAB
     Indication: COLORECTAL CANCER METASTATIC
     Dosage: 440 MG
     Route: 042
     Dates: start: 20170322, end: 20170322
  3. DOXYCYCLINE MONOHYDRATE [Concomitant]
     Active Substance: DOXYCYCLINE
     Indication: PROPHYLAXIS
     Dosage: 100 MG, QD
     Route: 048
  4. PALONOSETRON HYDROCHLORIDE. [Concomitant]
     Active Substance: PALONOSETRON HYDROCHLORIDE
     Indication: PROPHYLAXIS OF NAUSEA AND VOMITING
     Dosage: 250 UG, CYCLIC
     Route: 042
     Dates: start: 20170125, end: 20170322
  5. DOXYCYCLINE. [Concomitant]
     Active Substance: DOXYCYCLINE
     Indication: PROPHYLAXIS
     Dosage: 100 MILLIGRAM, QD
     Route: 048
     Dates: start: 20170125
  6. PANTOPRAZOLE SODIUM SESQUIHYDRATE [Concomitant]
     Active Substance: PANTOPRAZOLE SODIUM
     Indication: PROPHYLAXIS
     Dosage: 20 MG
     Route: 048
     Dates: start: 20170224
  7. LEUCOVORIN CALCIUM (MANUFACTURER UNKNOWN) [Suspect]
     Active Substance: LEUCOVORIN CALCIUM
     Indication: COLORECTAL CANCER METASTATIC
     Dosage: 800 MG
     Route: 065
     Dates: start: 20170125, end: 20170322
  8. HYDROCORTISONE ACETATE/CHLORAMPHENICOL [Concomitant]
     Indication: PROPHYLAXIS
     Dosage: 4 UNK
     Route: 061
     Dates: start: 20170125
  9. HYDROCORTISONE ACETATE/CHLORAMPHENICOL [Concomitant]
     Dosage: 4 DF, UNK
     Route: 061
  10. FLUOROURACIL SODIUM [Suspect]
     Active Substance: FLUOROURACIL SODIUM
     Indication: COLORECTAL CANCER METASTATIC
     Dosage: 500-4800 MG
     Route: 040
     Dates: start: 20170125
  11. FLUOROURACIL SODIUM [Suspect]
     Active Substance: FLUOROURACIL SODIUM
     Dosage: 470-2600 MG
     Route: 042
     Dates: end: 20170322
  12. GRANISETRON [Concomitant]
     Active Substance: GRANISETRON
     Indication: PROPHYLAXIS OF NAUSEA AND VOMITING
     Dosage: 2 MG, CYCLIC
     Route: 048
     Dates: start: 20170125, end: 20170322
  13. PANITUMUMAB [Suspect]
     Active Substance: PANITUMUMAB
     Indication: COLORECTAL CANCER METASTATIC
     Dosage: 500 MG
     Route: 042
     Dates: start: 20170125
  14. IRINOTECAN (MANUFACTURER UNKNOWN) [Suspect]
     Active Substance: IRINOTECAN
     Indication: COLORECTAL CANCER METASTATIC
     Dosage: 290 MG
     Route: 065
     Dates: start: 20170322
  15. PANTOPRAZOLE [Concomitant]
     Active Substance: PANTOPRAZOLE
     Indication: PROPHYLAXIS
     Dosage: 20 MG, UNK
     Route: 048
  16. CAFFEINE/PARACETAMOL/PROPYPHENAZONE [Concomitant]
     Active Substance: ACETAMINOPHEN\CAFFEINE\PROPYPHENAZONE
     Indication: PAIN
     Dosage: 500 MG
     Route: 048
  17. DEXAMETHASONE ACETATE [Concomitant]
     Active Substance: DEXAMETHASONE ACETATE
     Indication: PRODUCT USED FOR UNKNOWN INDICATION
     Dosage: 8 MILLIGRAM PER CYCLE
     Route: 048
     Dates: start: 20170125, end: 20170322

REACTIONS (2)
  - Rash [Unknown]
  - Colorectal cancer metastatic [Fatal]

NARRATIVE: CASE EVENT DATE: 20170208
